FAERS Safety Report 20698422 (Version 1)
Quarter: 2022Q2

REPORT INFORMATION
  Report Type: Spontaneous
  Country: JP (occurrence: JP)
  Receive Date: 20220412
  Receipt Date: 20220412
  Transmission Date: 20220721
  Serious: Yes (Hospitalization)
  Sender: FDA-Public Use
  Company Number: JP-SUN PHARMACEUTICAL INDUSTRIES LTD-2022R1-331190

PATIENT
  Age: 55 Year
  Sex: Male
  Weight: 101.1 kg

DRUGS (8)
  1. TEGRETOL [Suspect]
     Active Substance: CARBAMAZEPINE
     Indication: Cerebral infarction
     Dosage: 100 MILLIGRAM, BID
     Route: 048
     Dates: start: 20211104, end: 20220109
  2. FAMOTIDINE [Suspect]
     Active Substance: FAMOTIDINE
     Indication: Product used for unknown indication
     Dosage: 20 MILLIGRAM, QD
     Route: 048
     Dates: start: 20200924, end: 20220110
  3. CLOPIDOGREL TABLETS 75mg ^SANDO^ [Concomitant]
     Indication: Product used for unknown indication
     Dosage: UNK
     Route: 048
     Dates: start: 20200606, end: 20220110
  4. TRAZENTA TABLETS 5mg [Concomitant]
     Indication: Product used for unknown indication
     Dosage: UNK
     Route: 048
     Dates: end: 20220109
  5. METGLUCO TABLETS [Concomitant]
     Indication: Diabetes mellitus
     Dosage: UNK
     Route: 048
     Dates: start: 20200611, end: 20220109
  6. FORXIGA TABLETS 5mg [Concomitant]
     Indication: Product used for unknown indication
     Dosage: UNK
     Route: 048
     Dates: start: 20200615, end: 20220109
  7. OLMESARTAN OD TABLETS 20mg ^DSEP^ [Concomitant]
     Indication: Product used for unknown indication
     Dosage: UNK
     Route: 048
     Dates: start: 20211207, end: 20220109
  8. LYRICA OD TABLETS 75mg [Concomitant]
     Indication: Product used for unknown indication
     Dosage: UNK
     Route: 048
     Dates: start: 20200903, end: 20220109

REACTIONS (1)
  - Renal disorder [Recovered/Resolved]

NARRATIVE: CASE EVENT DATE: 20220101
